FAERS Safety Report 6895949-4 (Version None)
Quarter: 2010Q3

REPORT INFORMATION
  Report Type: 
  Country: None (occurrence: None)
  Receive Date: 20100728
  Receipt Date: 20100720
  Transmission Date: 20110219
  Serious: Yes (Other)
  Sender: FDA-Public Use
  Company Number: ACO_00867_2010

PATIENT
  Sex: Female
  Weight: 63.05 kg

DRUGS (14)
  1. AMPYRA [Suspect]
     Indication: MULTIPLE SCLEROSIS
     Dosage: (10 MG BID ORAL)
     Route: 048
     Dates: start: 20100514, end: 20100516
  2. COPAXONE /03175301/ [Concomitant]
  3. CLONAZEPAM [Concomitant]
  4. MULITIVITAMIN /00831701/ [Concomitant]
  5. CALCIUM [Concomitant]
  6. SUDAFED /00076302/ [Concomitant]
  7. MAGNESIUM [Concomitant]
  8. MECLIZINE /00072801/ [Concomitant]
  9. METAMUCIL /00029101/ [Concomitant]
  10. NASONEX [Concomitant]
  11. ADVAIR DISKUS 100/50 [Concomitant]
  12. ASPIRIN [Concomitant]
  13. ADVIL LIQUI-GELS [Concomitant]
  14. VITAMIN D3 [Concomitant]

REACTIONS (7)
  - BALANCE DISORDER [None]
  - DIZZINESS [None]
  - FEELING ABNORMAL [None]
  - FORMICATION [None]
  - MUSCLE TWITCHING [None]
  - TREMOR [None]
  - VISION BLURRED [None]
